FAERS Safety Report 12633548 (Version 1)
Quarter: 2016Q3

REPORT INFORMATION
  Report Type: Spontaneous
  Country: CA (occurrence: CA)
  Receive Date: 20160809
  Receipt Date: 20160809
  Transmission Date: 20161109
  Serious: Yes (Other)
  Sender: FDA-Public Use
  Company Number: CA-MYLANLABS-2016M1032372

PATIENT

DRUGS (1)
  1. EPINEPHRINE. [Suspect]
     Active Substance: EPINEPHRINE
     Indication: HAEMOSTASIS
     Dosage: 1 ML OF 1:1000 INJECTION
     Route: 067

REACTIONS (3)
  - Nausea [Recovered/Resolved]
  - Stress cardiomyopathy [Recovered/Resolved]
  - Headache [Recovered/Resolved]
